FAERS Safety Report 14423482 (Version 1)
Quarter: 2018Q1

REPORT INFORMATION
  Report Type: Spontaneous
  Country: US (occurrence: US)
  Receive Date: 20180122
  Receipt Date: 20180122
  Transmission Date: 20180509
  Serious: Yes (Other)
  Sender: FDA-Public Use
  Company Number: None

PATIENT
  Age: 76 Year
  Sex: Female
  Weight: 79.38 kg

DRUGS (20)
  1. GLIPICIDE [Concomitant]
  2. DIABETIC VITES [Concomitant]
  3. POTASSIUM GLUCONATE [Concomitant]
     Active Substance: POTASSIUM GLUCONATE
  4. B-100 COMPLEX [Concomitant]
     Active Substance: DEXPANTHENOL\NIACINAMIDE\PYRIDOXINE HYDROCHLORIDE\RIBOFLAVIN 5^-PHOSPHATE SODIUM\THIAMINE HYDROCHLORIDE
  5. OMEGA [Concomitant]
     Active Substance: CONVALLARIA MAJALIS\CRATAEGUS LAEVIGATA LEAF\PROXYPHYLLINE
  6. OMEPRAZOLE. [Concomitant]
     Active Substance: OMEPRAZOLE
  7. PROBIOTIC [Concomitant]
     Active Substance: PROBIOTICS NOS
  8. ASPIRIN. [Concomitant]
     Active Substance: ASPIRIN
  9. GARLIC. [Concomitant]
     Active Substance: GARLIC
  10. ESTRADIOL. [Suspect]
     Active Substance: ESTRADIOL
     Indication: VULVOVAGINAL DRYNESS
     Dosage: FREQUENCY - 2X WEEK, BEDTIME
     Route: 067
     Dates: start: 20171231, end: 20180101
  11. PROPRANOLOL ER [Concomitant]
     Active Substance: PROPRANOLOL HYDROCHLORIDE
  12. MAGNESIUM CHELATED [Concomitant]
  13. CINNAMON. [Concomitant]
     Active Substance: CINNAMON
  14. COQ10 [Concomitant]
     Active Substance: UBIDECARENONE
  15. NITROGLYCERIN. [Concomitant]
     Active Substance: NITROGLYCERIN
  16. CRANBERRY. [Concomitant]
     Active Substance: CRANBERRY
  17. FIBER [Concomitant]
     Active Substance: PSYLLIUM HUSK
  18. D [Concomitant]
  19. LISINOPRIL. [Concomitant]
     Active Substance: LISINOPRIL
  20. VAGIFEM [Concomitant]
     Active Substance: ESTRADIOL

REACTIONS (3)
  - Dizziness [None]
  - Abdominal discomfort [None]
  - Muscle spasms [None]

NARRATIVE: CASE EVENT DATE: 20171231
